FAERS Safety Report 10562237 (Version 2)
Quarter: 2014Q4

REPORT INFORMATION
  Report Type: Spontaneous
  Country: US (occurrence: None)
  Receive Date: 20141031
  Receipt Date: 20141222
  Transmission Date: 20150529
  Serious: Yes (Disabling, Other)
  Sender: FDA-Public Use
  Company Number: 2014-20590

PATIENT
  Age: 76 Year
  Sex: Female

DRUGS (13)
  1. LUTEIN /01638501/ (XANTOFYL) [Concomitant]
  2. PROBIOTIC /0639551/ (BIFIDOBACTERIUM LACTIS) [Concomitant]
  3. VITAMIN C /00008001/  (ASCORBIC ACID) [Concomitant]
  4. ASPIRIN(ACETYLSALICYLIC ACID) [Concomitant]
     Active Substance: ASPIRIN
  5. REQUIP [Concomitant]
     Active Substance: ROPINIROLE HYDROCHLORIDE
  6. VITAMIN D3 [Concomitant]
     Active Substance: CHOLECALCIFEROL
  7. EYLEA [Suspect]
     Active Substance: AFLIBERCEPT
     Indication: MACULAR DEGENERATION
     Dosage: 2 MG MILLIGRAM(S)/0.05 ML, 11TH INJECTION, IO.
     Route: 031
     Dates: start: 20141016, end: 20141016
  8. OMEPRAZOLE. [Concomitant]
     Active Substance: OMEPRAZOLE
  9. VYTORIN [Concomitant]
     Active Substance: EZETIMIBE\SIMVASTATIN
  10. CALCIUM /00060701/ (CALCIUM GLUCONATE) [Concomitant]
  11. COREG [Concomitant]
     Active Substance: CARVEDILOL
  12. SYNTHROID [Concomitant]
     Active Substance: LEVOTHYROXINE SODIUM
  13. THERAPEUTIC MULTIVITAMIN /01824401/ ?(ASCORBIC ACID, CALCIUM PANTOPTHENATE, CYANOCOBALAMIN, ERGOCALCIFEROL, NICOTINAMIDE,PYRIDOXINE HYDROCHLORIDE, RETINOL,RIBOVLAVIN,THIAMINE HYDROCHLORIDE) [Concomitant]

REACTIONS (3)
  - Eye inflammation [None]
  - Blindness [None]
  - Hypopyon [None]

NARRATIVE: CASE EVENT DATE: 20141020
